FAERS Safety Report 21477473 (Version 1)
Quarter: 2022Q4

REPORT INFORMATION
  Report Type: Spontaneous
  Country: CH (occurrence: CH)
  Receive Date: 20221019
  Receipt Date: 20221019
  Transmission Date: 20230112
  Serious: Yes (Death, Other)
  Sender: FDA-Public Use
  Company Number: CH-BRISTOL-MYERS SQUIBB COMPANY-2022-121862

PATIENT
  Age: 87 Year
  Sex: Male

DRUGS (7)
  1. REVLIMID [Suspect]
     Active Substance: LENALIDOMIDE
     Indication: Mantle cell lymphoma
     Dosage: 10MG/DAY?DAY 1-21 OF 28 DAYS CYCLE
     Route: 048
     Dates: start: 20210929
  2. FOLVITE [FOLIC ACID] [Concomitant]
     Indication: Product used for unknown indication
     Route: 048
  3. CALCIUM CARBONATE\CHOLECALCIFEROL [Concomitant]
     Active Substance: CALCIUM CARBONATE\CHOLECALCIFEROL
     Indication: Product used for unknown indication
     Dosage: 500/800
     Route: 048
  4. VITALUX PLUS [GELATIN;IRON OXIDES;LECITHIN;MONOGLYCERIDE;PROGESTERONE; [Concomitant]
     Indication: Product used for unknown indication
     Route: 048
  5. MIDODRINE HYDROCHLORIDE [Concomitant]
     Active Substance: MIDODRINE HYDROCHLORIDE
     Indication: Product used for unknown indication
     Route: 048
  6. METOPROLOL [Concomitant]
     Active Substance: METOPROLOL
     Indication: Product used for unknown indication
     Route: 048
  7. RHINOVENT [Concomitant]
     Indication: Product used for unknown indication
     Dosage: MAX. 4X/DAY SPRAYED TWICE PER SIDE OF THE NOS
     Route: 045

REACTIONS (1)
  - Death [Fatal]
